FAERS Safety Report 4285452-2 (Version None)
Quarter: 2004Q1

REPORT INFORMATION
  Report Type: 
  Country: None (occurrence: None)
  Receive Date: 20040202
  Receipt Date: 20040116
  Transmission Date: 20041129
  Serious: Yes (Death)
  Sender: FDA-Public Use
  Company Number: US-JNJFOC-20040103195

PATIENT
  Age: 68 Year
  Sex: Female
  Weight: 66.2252 kg

DRUGS (6)
  1. INFLIXIMAB (INFLIXIMAB, RECOMBINANT) LYOPHILIZED POWDER [Suspect]
     Indication: RHEUMATOID ARTHRITIS
     Dosage: INTRAVENOUS
     Route: 042
     Dates: start: 20000328, end: 20030902
  2. LESCOL [Concomitant]
  3. METHOTREXATE [Concomitant]
  4. ATACAND [Concomitant]
  5. FOLIC ACID [Concomitant]
  6. KLOR-CON [Concomitant]

REACTIONS (1)
  - COLON CANCER METASTATIC [None]
